FAERS Safety Report 22302657 (Version 1)
Quarter: 2023Q2

REPORT INFORMATION
  Report Type: Other
  Country: FR (occurrence: FR)
  Receive Date: 20230510
  Receipt Date: 20230510
  Transmission Date: 20230722
  Serious: Yes (Other)
  Sender: FDA-Public Use
  Company Number: None

PATIENT

DRUGS (5)
  1. SPIRONOLACTONE [Suspect]
     Active Substance: SPIRONOLACTONE
     Indication: Hepatic failure
     Dosage: 50 MILLIGRAM, QD
     Route: 048
     Dates: start: 202211
  2. CARVEDILOL [Suspect]
     Active Substance: CARVEDILOL
     Indication: Hepatic failure
     Dosage: 12.5 MILLIGRAM, QD
     Route: 048
     Dates: start: 202212
  3. FUROSEMIDE [Suspect]
     Active Substance: FUROSEMIDE
     Indication: Hepatic failure
     Dosage: 1 DOSAGE FORM, QD
     Route: 048
     Dates: start: 202211
  4. PROGRAF [Suspect]
     Active Substance: TACROLIMUS
     Indication: Prophylaxis against transplant rejection
     Dosage: 8 MILLIGRAM, QD
     Route: 048
     Dates: start: 202303
  5. CELLCEPT [Suspect]
     Active Substance: MYCOPHENOLATE MOFETIL
     Indication: Prophylaxis against transplant rejection
     Dosage: 1500 MILLIGRAM, QD
     Route: 048
     Dates: start: 202303

REACTIONS (1)
  - Pericarditis [Recovering/Resolving]

NARRATIVE: CASE EVENT DATE: 20230416
